FAERS Safety Report 13688162 (Version 2)
Quarter: 2017Q3

REPORT INFORMATION
  Report Type: Spontaneous
  Country: US (occurrence: US)
  Receive Date: 20170626
  Receipt Date: 20170711
  Transmission Date: 20171127
  Serious: Yes (Death)
  Sender: FDA-Public Use
  Company Number: US-PFIZER INC-2017275928

PATIENT
  Sex: Male

DRUGS (3)
  1. MORPHINE SULFATE. [Suspect]
     Active Substance: MORPHINE SULFATE
     Dosage: UNK
  2. OXYCODONE [Suspect]
     Active Substance: OXYCODONE
     Dosage: UNK
  3. XANAX [Suspect]
     Active Substance: ALPRAZOLAM
     Dosage: 1 MG, UNK

REACTIONS (4)
  - Accident [Unknown]
  - Feeling abnormal [Unknown]
  - Death [Fatal]
  - Drug intolerance [Unknown]

NARRATIVE: CASE EVENT DATE: 20170627
